FAERS Safety Report 7076803-4 (Version None)
Quarter: 2010Q4

REPORT INFORMATION
  Report Type: 
  Country: None (occurrence: None)
  Receive Date: 20101101
  Receipt Date: 20101022
  Transmission Date: 20110411
  Serious: Yes (Disabling)
  Sender: FDA-Public Use
  Company Number: BE-ASTRAZENECA-2010SE29937

PATIENT
  Age: 691 Month
  Sex: Female
  Weight: 60.9 kg

DRUGS (1)
  1. NOLVADEX [Suspect]
     Indication: MALIGNANT BREAST LUMP REMOVAL
     Route: 048
     Dates: start: 20081201, end: 20100301

REACTIONS (2)
  - TENSION HEADACHE [None]
  - TINNITUS [None]
